FAERS Safety Report 10570131 (Version 2)
Quarter: 2014Q4

REPORT INFORMATION
  Report Type: Spontaneous
  Country: US (occurrence: None)
  Receive Date: 20141105
  Receipt Date: 20141208
  Transmission Date: 20150529
  Serious: Yes (Hospitalization)
  Sender: FDA-Public Use
  Company Number: RAP-0168-2014

PATIENT
  Age: 23 Year
  Sex: Female
  Weight: 56 kg

DRUGS (2)
  1. PROCYSBI DELAYED-RELEASE [Suspect]
     Active Substance: CYSTEAMINE BITARTRATE
     Indication: CYSTINOSIS
     Dosage: 1200MG (600MG, 1 IN 12 HR) ORAL
     Route: 048
     Dates: start: 20131012
  2. ANTI-REJECTION MEDICATION (UNKNOWN) [Concomitant]

REACTIONS (2)
  - Renal failure [None]
  - Complications of transplanted kidney [None]

NARRATIVE: CASE EVENT DATE: 20141006
